FAERS Safety Report 17811298 (Version 3)
Quarter: 2021Q1

REPORT INFORMATION
  Report Type: Spontaneous
  Country: US (occurrence: US)
  Receive Date: 20200521
  Receipt Date: 20210331
  Transmission Date: 20210419
  Serious: Yes (Other)
  Sender: FDA-Public Use
  Company Number: US-PFIZER INC-2018313578

PATIENT
  Age: 60 Year
  Sex: Male

DRUGS (4)
  1. PRISTIQ EXTENDED?RELEASE [Suspect]
     Active Substance: DESVENLAFAXINE SUCCINATE
     Dosage: 100 MG, 2X/DAY (100 MG TWICE A DAY ONCE IN THE MORNING AND ONCE AT NIGHT)
  2. PRISTIQ EXTENDED?RELEASE [Suspect]
     Active Substance: DESVENLAFAXINE SUCCINATE
     Dosage: 2 DF, DAILY [100, 2 TAB Q (EVERY) DAILY]
  3. PRISTIQ EXTENDED?RELEASE [Suspect]
     Active Substance: DESVENLAFAXINE SUCCINATE
     Dosage: UNK, 2X/DAY (STRENGTH 100)
  4. PRISTIQ EXTENDED?RELEASE [Suspect]
     Active Substance: DESVENLAFAXINE SUCCINATE
     Dosage: 100 MG, 1X/DAY

REACTIONS (1)
  - Anaemia [Unknown]
